FAERS Safety Report 19589048 (Version 1)
Quarter: 2021Q3

REPORT INFORMATION
  Report Type: Spontaneous
  Country: FR (occurrence: FR)
  Receive Date: 20210721
  Receipt Date: 20210721
  Transmission Date: 20211014
  Serious: Yes (Hospitalization)
  Sender: FDA-Public Use
  Company Number: FR-PFIZER INC-2021842913

PATIENT
  Age: 8 Year
  Sex: Male

DRUGS (4)
  1. TAZOCILLINE [Suspect]
     Active Substance: PIPERACILLIN SODIUM\TAZOBACTAM SODIUM
     Indication: APLASIA
     Dosage: UNK
     Route: 042
     Dates: start: 20210503, end: 20210601
  2. TEICOPLANINE MYLAN [Suspect]
     Active Substance: TEICOPLANIN
     Indication: APLASIA
     Dosage: UNK
     Route: 042
     Dates: start: 20210521, end: 20210601
  3. CASPOFUNGINE MYLAN [Suspect]
     Active Substance: CASPOFUNGIN ACETATE
     Indication: APLASIA
     Dosage: UNK
     Route: 042
     Dates: start: 20210514, end: 20210526
  4. CICLOSPORINE [Concomitant]
     Active Substance: CYCLOSPORINE
     Dosage: UNK

REACTIONS (3)
  - Fluid overload [Recovered/Resolved]
  - Pyrexia [Recovered/Resolved]
  - Rash maculo-papular [Recovered/Resolved]

NARRATIVE: CASE EVENT DATE: 20210524
